FAERS Safety Report 8078006-3 (Version None)
Quarter: 2012Q1

REPORT INFORMATION
  Report Type: 
  Country: None (occurrence: None)
  Receive Date: 20120127
  Receipt Date: 20110208
  Transmission Date: 20120608
  Serious: No
  Sender: FDA-Public Use
  Company Number: US-ABBOTT-10P-163-0682344-00

PATIENT
  Sex: Male

DRUGS (9)
  1. FLUOXETINE [Concomitant]
     Indication: PRODUCT USED FOR UNKNOWN INDICATION
  2. AZMACORT [Concomitant]
     Indication: HYPERSENSITIVITY
     Route: 055
  3. HUMIRA [Suspect]
     Indication: CROHN'S DISEASE
     Dosage: TAPERING DOSE FOR CROHNS - HAD 4 INJECTIONS ON THE 15TH
     Dates: start: 20101015
  4. ALBUTEROL [Concomitant]
     Indication: PRODUCT USED FOR UNKNOWN INDICATION
  5. IMODIUM [Concomitant]
     Indication: PRODUCT USED FOR UNKNOWN INDICATION
  6. FLONASE [Concomitant]
     Indication: PRODUCT USED FOR UNKNOWN INDICATION
     Dosage: GENERIC FORM
     Route: 055
  7. ACETAMINOPHEN [Concomitant]
     Indication: PRODUCT USED FOR UNKNOWN INDICATION
  8. ALLEGRA [Concomitant]
     Indication: HYPERSENSITIVITY
  9. PROAIR HFA [Concomitant]
     Indication: HYPERSENSITIVITY
     Route: 055

REACTIONS (2)
  - INJECTION SITE PAIN [None]
  - INJECTION SITE HAEMORRHAGE [None]
